FAERS Safety Report 9004492 (Version 1)
Quarter: 2013Q1

REPORT INFORMATION
  Report Type: Spontaneous
  Country: FR (occurrence: FR)
  Receive Date: 20130108
  Receipt Date: 20130108
  Transmission Date: 20140127
  Serious: Yes (Other)
  Sender: FDA-Public Use
  Company Number: FR-ROCHE-1174414

PATIENT
  Age: 29 Year
  Sex: Female

DRUGS (1)
  1. ACTILYSE [Suspect]
     Indication: THROMBOSIS
     Dosage: DURATION: 1 HOUR
     Route: 042
     Dates: start: 19910915, end: 19910915

REACTIONS (2)
  - Abortion [Unknown]
  - Exposure during pregnancy [Unknown]
